FAERS Safety Report 10027886 (Version 10)
Quarter: 2014Q4

REPORT INFORMATION
  Report Type: Report from Study
  Country: DE (occurrence: DE)
  Receive Date: 20140321
  Receipt Date: 20141007
  Transmission Date: 20150528
  Serious: Yes (Hospitalization, Other)
  Sender: FDA-Public Use
  Company Number: PHHO2014DE003651

PATIENT

DRUGS (9)
  1. PLACEBO [Suspect]
     Active Substance: UNSPECIFIED INGREDIENT
     Indication: NEUROENDOCRINE TUMOUR
     Dosage: CODE NOT BROKEN
     Route: 048
     Dates: start: 20130412, end: 20140218
  2. AFINITOR [Suspect]
     Active Substance: EVEROLIMUS
     Dosage: CODE NOT BROKEN
     Route: 048
     Dates: start: 20140318, end: 20140428
  3. BLINDED NO TREATMENT RECEIVED [Suspect]
     Active Substance: UNSPECIFIED INGREDIENT
     Dosage: CODE NOT BROKEN
     Route: 048
     Dates: start: 20140318, end: 20140428
  4. BLINDED NO TREATMENT RECEIVED [Suspect]
     Active Substance: UNSPECIFIED INGREDIENT
     Indication: NEUROENDOCRINE TUMOUR
     Dosage: CODE NOT BROKEN
     Route: 048
     Dates: start: 20130412, end: 20140218
  5. PLACEBO [Suspect]
     Active Substance: UNSPECIFIED INGREDIENT
     Dosage: CODE NOT BROKEN
     Route: 048
     Dates: start: 20140318, end: 20140428
  6. AFINITOR [Suspect]
     Active Substance: EVEROLIMUS
     Indication: NEUROENDOCRINE TUMOUR
     Dosage: CODE NOT BROKEN
     Route: 048
     Dates: start: 20130412, end: 20140218
  7. TORASEMIDE [Suspect]
     Active Substance: TORSEMIDE
     Indication: OEDEMA
     Dosage: 10 MG, TID [5-10MG]
     Dates: start: 20140212, end: 20140219
  8. HYDROCHLOROTHIAZIDE. [Suspect]
     Active Substance: HYDROCHLOROTHIAZIDE
     Indication: OEDEMA
     Dosage: 12 MG, QD
     Dates: start: 20140212, end: 20140219
  9. ARIXTRA [Concomitant]
     Active Substance: FONDAPARINUX SODIUM
     Dosage: 5 MG, DAILY
     Route: 058

REACTIONS (7)
  - Fatigue [Recovered/Resolved]
  - Diabetes mellitus [Not Recovered/Not Resolved]
  - Disturbance in attention [Recovered/Resolved]
  - Hypokalaemia [Recovered/Resolved]
  - Back pain [Not Recovered/Not Resolved]
  - Asthenia [Recovered/Resolved]
  - Hypovolaemia [Recovered/Resolved]

NARRATIVE: CASE EVENT DATE: 20130810
